FAERS Safety Report 25919501 (Version 2)
Quarter: 2025Q4

REPORT INFORMATION
  Report Type: Spontaneous
  Country: US (occurrence: US)
  Receive Date: 20251014
  Receipt Date: 20251017
  Transmission Date: 20260117
  Serious: No
  Sender: NOVO NORDISK
  Company Number: US-NOVOPROD-1536677

PATIENT
  Sex: Female
  Weight: 79.365 kg

DRUGS (2)
  1. OZEMPIC [Suspect]
     Active Substance: SEMAGLUTIDE
     Indication: Chronic kidney disease
     Dosage: 0.25 MG, QW (RESTARTED)
     Route: 058
     Dates: start: 20251004
  2. OZEMPIC [Suspect]
     Active Substance: SEMAGLUTIDE
     Indication: Type 2 diabetes mellitus
     Dosage: 0.25 MG, QW (TOOK IT FOR TWO MONTHS)
     Route: 058
     Dates: start: 2025, end: 2025

REACTIONS (3)
  - Renal impairment [Unknown]
  - Dehydration [Unknown]
  - Off label use [Unknown]
